FAERS Safety Report 13316561 (Version 4)
Quarter: 2021Q2

REPORT INFORMATION
  Report Type: Report from Study
  Country: AT (occurrence: AT)
  Receive Date: 20170310
  Receipt Date: 20210630
  Transmission Date: 20210716
  Serious: Yes (Hospitalization)
  Sender: FDA-Public Use
  Company Number: AT-SHIRE-AT201705335

PATIENT
  Age: 31 Year
  Sex: Male
  Weight: 110 kg

DRUGS (3)
  1. IDURSULFASE [Suspect]
     Active Substance: IDURSULFASE
     Indication: MUCOPOLYSACCHARIDOSIS II
     Dosage: 0.5 MILLIGRAM/KILOGRAM, 1/WEEK
     Route: 041
     Dates: start: 2007
  2. IDURSULFASE [Suspect]
     Active Substance: IDURSULFASE
     Dosage: 48 MILLIGRAM, 1/WEEK
     Route: 041
     Dates: start: 20120801
  3. IDURSULFASE [Suspect]
     Active Substance: IDURSULFASE
     Dosage: 0.5 MILLIGRAM/KILOGRAM, 1/WEEK
     Route: 041
     Dates: start: 2012

REACTIONS (4)
  - Obesity [Recovering/Resolving]
  - Folate deficiency [Recovering/Resolving]
  - Umbilical hernia [Recovered/Resolved]
  - Carpal tunnel syndrome [Recovered/Resolved]

NARRATIVE: CASE EVENT DATE: 20160209
